FAERS Safety Report 7402309-6 (Version None)
Quarter: 2011Q1

REPORT INFORMATION
  Report Type: 
  Country: None (occurrence: None)
  Receive Date: 20110331
  Receipt Date: 20110321
  Transmission Date: 20110831
  Serious: Yes (Hospitalization)
  Sender: FDA-Public Use
  Company Number: TRP_07608_2011

PATIENT
  Age: 54 Year
  Sex: Female

DRUGS (3)
  1. PEGINTERFERON ALFA-2A [Suspect]
     Indication: HEPATITIS C
     Dosage: (180 UG  SUBCUTANEOUS)
     Route: 058
     Dates: start: 20080722, end: 20080722
  2. RIBAVIRIN [Suspect]
     Indication: HEPATITIS C
     Dosage: (600 MG)
     Dates: start: 20070814, end: 20080715
  3. PEGINTERFERON ALFA-2B [Suspect]
     Indication: HEPATITIS C
     Dosage: (80 UG)
     Dates: start: 20070814, end: 20080715

REACTIONS (4)
  - PURPURA [None]
  - GASTROINTESTINAL MUCOSAL DISORDER [None]
  - HELICOBACTER INFECTION [None]
  - AUTOIMMUNE THROMBOCYTOPENIA [None]
